FAERS Safety Report 22772632 (Version 3)
Quarter: 2023Q4

REPORT INFORMATION
  Report Type: Report from Study
  Country: EG (occurrence: EG)
  Receive Date: 20230801
  Receipt Date: 20231030
  Transmission Date: 20240109
  Serious: Yes (Death, Hospitalization, Other)
  Sender: FDA-Public Use
  Company Number: EG-TAKEDA-2023TUS013239

PATIENT
  Age: 58 Year
  Sex: Female

DRUGS (1)
  1. VEDOLIZUMAB [Suspect]
     Active Substance: VEDOLIZUMAB
     Indication: Crohn^s disease
     Dosage: UNK
     Route: 042
     Dates: start: 20220518, end: 20230531

REACTIONS (9)
  - Death [Fatal]
  - Crohn^s disease [Unknown]
  - Blood pressure decreased [Not Recovered/Not Resolved]
  - Portal hypertensive colopathy [Unknown]
  - Haemorrhagic erosive gastritis [Unknown]
  - Erosive duodenitis [Unknown]
  - Ileal stenosis [Unknown]
  - Lipoma [Unknown]
  - Varices oesophageal [Unknown]
